FAERS Safety Report 8086749-0 (Version None)
Quarter: 2012Q1

REPORT INFORMATION
  Report Type: 
  Country: None (occurrence: None)
  Receive Date: 20120128
  Receipt Date: 20110610
  Transmission Date: 20120608
  Serious: Yes (Other)
  Sender: FDA-Public Use
  Company Number: US-ABBOTT-11P-163-0731959-00

PATIENT
  Sex: Female
  Weight: 50.848 kg

DRUGS (11)
  1. FLAGYL [Concomitant]
     Indication: POUCHITIS
  2. HUMIRA [Suspect]
     Indication: CROHN'S DISEASE
     Dates: start: 20110301
  3. HUMIRA [Suspect]
     Dates: start: 20100101, end: 20101101
  4. DIAZEPAM [Concomitant]
     Indication: ANXIETY
  5. SCOPOLAMINE [Concomitant]
     Indication: NAUSEA
     Dosage: PATCH
  6. HYDROCODONE BITARTRATE [Concomitant]
     Indication: ABDOMINAL PAIN
  7. ANTIBIOTICS CREAM [Suspect]
     Indication: RASH
     Route: 061
     Dates: start: 20110501
  8. PROMETHAZINE [Concomitant]
     Indication: NAUSEA
  9. LACTULOSE [Concomitant]
     Indication: PELVIC POUCH PROCEDURE
  10. PREVACID [Concomitant]
     Indication: GASTROOESOPHAGEAL REFLUX DISEASE
  11. CYMBALTA [Concomitant]
     Indication: DEPRESSION

REACTIONS (2)
  - RASH [None]
  - BASAL CELL CARCINOMA [None]
